FAERS Safety Report 11204560 (Version 1)
Quarter: 2015Q2

REPORT INFORMATION
  Report Type: Spontaneous
  Country: US (occurrence: US)
  Receive Date: 20150622
  Receipt Date: 20150622
  Transmission Date: 20150821
  Serious: Yes (Death)
  Sender: FDA-Public Use
  Company Number: US-ROCHE-1594368

PATIENT
  Age: 71 Year
  Sex: Female

DRUGS (3)
  1. XELODA [Suspect]
     Active Substance: CAPECITABINE
     Indication: COLON CANCER
     Dosage: 3 TABLETS/2 TABLETS
     Route: 048
     Dates: start: 20150317
  2. XELODA [Suspect]
     Active Substance: CAPECITABINE
     Dosage: QAM, 14 DAYS ON 7 DAYS OFF
     Route: 048
     Dates: start: 20150318, end: 20150608
  3. XELODA [Suspect]
     Active Substance: CAPECITABINE
     Dosage: 1PM, 14 DAYS ON 7 DAYS OFF
     Route: 048
     Dates: start: 20150318, end: 20150608

REACTIONS (1)
  - Colon cancer [Fatal]

NARRATIVE: CASE EVENT DATE: 20150608
